FAERS Safety Report 13025036 (Version 2)
Quarter: 2016Q4

REPORT INFORMATION
  Report Type: Report from Study
  Country: JP (occurrence: JP)
  Receive Date: 20161213
  Receipt Date: 20161220
  Transmission Date: 20170207
  Serious: Yes (Other)
  Sender: FDA-Public Use
  Company Number: JP-CELGENEUS-JPN-2014105385

PATIENT
  Age: 79 Year
  Sex: Female
  Weight: 53 kg

DRUGS (36)
  1. DEXALTIN [Concomitant]
     Active Substance: DEXAMETHASONE
     Route: 065
  2. VIDAZA [Suspect]
     Active Substance: AZACITIDINE
     Dosage: 50.25MG/M2
     Route: 041
     Dates: start: 20121213, end: 20121217
  3. VIDAZA [Suspect]
     Active Substance: AZACITIDINE
     Dosage: 50.25MG/M2
     Route: 041
     Dates: start: 20130119, end: 20130123
  4. VIDAZA [Suspect]
     Active Substance: AZACITIDINE
     Dosage: 37.5MG/M2
     Route: 041
     Dates: start: 20130718, end: 20130722
  5. PRIMOBOLAN-DEPOT [Concomitant]
     Active Substance: METHENOLONE ENANTHATE
     Indication: PRODUCT USED FOR UNKNOWN INDICATION
     Route: 065
     Dates: start: 20120404
  6. VIDAZA [Suspect]
     Active Substance: AZACITIDINE
     Dosage: 50MG/M2
     Route: 041
     Dates: start: 20120307, end: 20120311
  7. VIDAZA [Suspect]
     Active Substance: AZACITIDINE
     Dosage: 50.25MG/M2
     Route: 041
     Dates: start: 20121012, end: 20121016
  8. VIDAZA [Suspect]
     Active Substance: AZACITIDINE
     Dosage: 50.25MG/M2
     Route: 041
     Dates: start: 20130614, end: 20130618
  9. ASTOMIN [Concomitant]
     Active Substance: DIMEMORFAN
     Indication: PRODUCT USED FOR UNKNOWN INDICATION
     Route: 065
     Dates: start: 20111221, end: 20130104
  10. GENINAX [Concomitant]
     Active Substance: GARENOXACIN MESYLATE
     Indication: PRODUCT USED FOR UNKNOWN INDICATION
     Route: 065
     Dates: start: 20111221, end: 20111226
  11. AZULENE SULFONATE SODIUM [Concomitant]
     Active Substance: SODIUM GUALENATE
     Indication: PRODUCT USED FOR UNKNOWN INDICATION
     Route: 048
     Dates: start: 20111028
  12. ONDANSETRON [Concomitant]
     Active Substance: ONDANSETRON
     Route: 065
     Dates: start: 20120906
  13. VIDAZA [Suspect]
     Active Substance: AZACITIDINE
     Dosage: 37.5MG/M2
     Route: 041
     Dates: start: 20120705, end: 20120709
  14. VIDAZA [Suspect]
     Active Substance: AZACITIDINE
     Dosage: 50.25MG/M2
     Route: 041
     Dates: start: 20120805, end: 20120809
  15. SEROTONE [Concomitant]
     Active Substance: AZASETRON HYDROCHLORIDE
     Indication: PRODUCT USED FOR UNKNOWN INDICATION
     Route: 065
     Dates: start: 20111027, end: 20120709
  16. ONDANSETRON [Concomitant]
     Active Substance: ONDANSETRON
     Indication: PRODUCT USED FOR UNKNOWN INDICATION
     Route: 065
     Dates: start: 20120805, end: 20120809
  17. VIDAZA [Suspect]
     Active Substance: AZACITIDINE
     Dosage: 50MG/M2
     Route: 041
     Dates: start: 20120107, end: 20120111
  18. VIDAZA [Suspect]
     Active Substance: AZACITIDINE
     Dosage: 50MG/M2
     Route: 041
     Dates: start: 20120206, end: 20120210
  19. VIDAZA [Suspect]
     Active Substance: AZACITIDINE
     Dosage: 37.5MG/M2
     Route: 041
     Dates: start: 20120517, end: 20120521
  20. MYSLEE [Concomitant]
     Active Substance: ZOLPIDEM TARTRATE
     Indication: PRODUCT USED FOR UNKNOWN INDICATION
     Route: 065
     Dates: start: 20120404, end: 20120414
  21. VIDAZA [Suspect]
     Active Substance: AZACITIDINE
     Indication: MYELODYSPLASTIC SYNDROME
     Dosage: 50MG/M2
     Route: 041
     Dates: start: 20111027, end: 20111102
  22. VIDAZA [Suspect]
     Active Substance: AZACITIDINE
     Dosage: 50.25MG/M2
     Route: 041
     Dates: start: 20120906, end: 20120910
  23. VIDAZA [Suspect]
     Active Substance: AZACITIDINE
     Dosage: 50.25MG/M2
     Route: 041
     Dates: start: 20130216, end: 20130220
  24. VIDAZA [Suspect]
     Active Substance: AZACITIDINE
     Dosage: 50.25MG/M2
     Route: 041
     Dates: start: 20130426, end: 20130430
  25. LEVOCETIRIZINE HYDROCHLORIDE [Concomitant]
     Active Substance: LEVOCETIRIZINE HYDROCHLORIDE
     Indication: PRODUCT USED FOR UNKNOWN INDICATION
     Route: 065
     Dates: start: 20130614
  26. MAGMITT [Concomitant]
     Active Substance: MAGNESIUM OXIDE
     Indication: PRODUCT USED FOR UNKNOWN INDICATION
     Dosage: 330
     Route: 048
     Dates: start: 20111029, end: 20130619
  27. SENNOSIDE [Concomitant]
     Active Substance: SENNOSIDES
     Indication: PRODUCT USED FOR UNKNOWN INDICATION
     Route: 065
     Dates: start: 20111105, end: 20120119
  28. PL [Concomitant]
     Active Substance: ACETAMINOPHEN\CAFFEINE\PROMETHAZINE\SALICYLAMIDE
     Indication: PRODUCT USED FOR UNKNOWN INDICATION
     Route: 065
     Dates: start: 20111221, end: 20120104
  29. MOHRUS TAPE [Concomitant]
     Active Substance: KETOPROFEN
     Indication: PRODUCT USED FOR UNKNOWN INDICATION
     Route: 065
     Dates: start: 20120507
  30. VIDAZA [Suspect]
     Active Substance: AZACITIDINE
     Dosage: 50MG/M2
     Route: 041
     Dates: start: 20111201, end: 20111205
  31. VIDAZA [Suspect]
     Active Substance: AZACITIDINE
     Dosage: 50.25MG/M2
     Route: 041
     Dates: start: 20121109, end: 20121113
  32. VIDAZA [Suspect]
     Active Substance: AZACITIDINE
     Dosage: 50.25MG/M2
     Route: 041
     Dates: start: 20130323, end: 20130327
  33. REVLIMID [Suspect]
     Active Substance: LENALIDOMIDE
     Indication: MYELODYSPLASTIC SYNDROME
     Route: 048
     Dates: start: 20130422
  34. PROTECADIN [Concomitant]
     Active Substance: LAFUTIDINE
     Indication: PRODUCT USED FOR UNKNOWN INDICATION
     Route: 065
     Dates: start: 20111027
  35. ISODINE [Concomitant]
     Active Substance: POVIDONE-IODINE
     Indication: PRODUCT USED FOR UNKNOWN INDICATION
     Route: 065
     Dates: start: 20111206
  36. DEXALTIN [Concomitant]
     Active Substance: DEXAMETHASONE
     Indication: PRODUCT USED FOR UNKNOWN INDICATION
     Route: 065
     Dates: start: 20120110

REACTIONS (9)
  - Oropharyngeal pain [Recovering/Resolving]
  - Platelet count decreased [Recovering/Resolving]
  - Constipation [Recovered/Resolved]
  - Stomatitis [Unknown]
  - Nausea [Recovering/Resolving]
  - Internal haemorrhage [Recovered/Resolved]
  - Bone marrow failure [Recovering/Resolving]
  - Cough [Recovering/Resolving]
  - Stomatitis [Recovering/Resolving]

NARRATIVE: CASE EVENT DATE: 20111028
